FAERS Safety Report 8837570 (Version 3)
Quarter: 2013Q1

REPORT INFORMATION
  Report Type: Report from Study
  Country: GB (occurrence: GB)
  Receive Date: 20121012
  Receipt Date: 20130123
  Transmission Date: 20140127
  Serious: Yes (Hospitalization)
  Sender: FDA-Public Use
  Company Number: GB-EISAI INC-E7389-03097-CLI-GB

PATIENT
  Age: 57 Year
  Sex: Male
  Weight: 90 kg

DRUGS (8)
  1. E7389 (BOLD) [Suspect]
     Indication: NON-SMALL CELL LUNG CANCER
     Route: 041
     Dates: start: 20120913
  2. ZOPICLONE [Concomitant]
     Indication: SEDATION
     Route: 048
     Dates: start: 20120829
  3. MORPHINE SULPHATE [Concomitant]
     Indication: PAIN
     Route: 048
     Dates: start: 20120501
  4. LANSOPRAZOLE [Concomitant]
     Indication: GASTROOESOPHAGEAL REFLUX DISEASE
     Route: 048
     Dates: start: 2002
  5. ASPIRIN [Concomitant]
     Indication: PROPHYLAXIS
     Route: 048
     Dates: start: 1997
  6. SERTRALINE [Concomitant]
     Indication: DEPRESSION
     Route: 048
     Dates: start: 2010
  7. LOSARTAN [Concomitant]
     Indication: PROPHYLAXIS
     Route: 048
     Dates: start: 2010
  8. CALCICHEW [Concomitant]
     Indication: OSTEOPOROSIS
     Route: 048
     Dates: start: 2005

REACTIONS (2)
  - Haemoptysis [Recovered/Resolved]
  - Blood glucose increased [Unknown]
